FAERS Safety Report 5046566-2 (Version None)
Quarter: 2006Q2

REPORT INFORMATION
  Report Type: 
  Country: None (occurrence: None)
  Receive Date: 20060630
  Receipt Date: 20060621
  Transmission Date: 20061013
  Serious: Yes (Life-Threatening)
  Sender: FDA-Public Use
  Company Number: 2006_000018

PATIENT
  Age: 8 Year
  Sex: Male

DRUGS (5)
  1. DEPOCYT [Suspect]
     Indication: METASTASES TO MENINGES
     Dosage: INTH
     Route: 037
     Dates: end: 20060421
  2. TEGRETOL [Concomitant]
  3. PHENYTOIN [Concomitant]
  4. RIVOTRIL [Concomitant]
  5. GLEEVEC [Concomitant]

REACTIONS (3)
  - DRUG INTERACTION [None]
  - DYSPHAGIA [None]
  - STATUS EPILEPTICUS [None]
